FAERS Safety Report 4397995-1 (Version None)
Quarter: 2004Q3

REPORT INFORMATION
  Report Type: 
  Country: None (occurrence: None)
  Receive Date: 20040713
  Receipt Date: 20040713
  Transmission Date: 20050211
  Serious: Yes (Death, Hospitalization)
  Sender: FDA-Public Use
  Company Number: None

PATIENT
  Age: 60 Year
  Sex: Male
  Weight: 94.9 kg

DRUGS (4)
  1. NAVELBINE [Suspect]
     Indication: PALLIATIVE CARE
     Dosage: 60 MG X 1 IV
     Route: 042
     Dates: start: 20040712
  2. ZOFRAN [Concomitant]
  3. DECADRON [Concomitant]
  4. BENADRYL [Concomitant]

REACTIONS (4)
  - ACIDOSIS [None]
  - MYOCARDIAL INFARCTION [None]
  - PULMONARY OEDEMA [None]
  - VENTRICULAR HYPERTROPHY [None]
